FAERS Safety Report 6782201-0 (Version None)
Quarter: 2010Q2

REPORT INFORMATION
  Report Type: 
  Country: None (occurrence: None)
  Receive Date: 20100621
  Receipt Date: 20100616
  Transmission Date: 20101027
  Serious: Yes (Other)
  Sender: FDA-Public Use
  Company Number: US-SANOFI-AVENTIS-2010SA035248

PATIENT

DRUGS (1)
  1. ELOXATIN [Suspect]
     Route: 051

REACTIONS (1)
  - OCULAR TOXICITY [None]
